FAERS Safety Report 24385264 (Version 1)
Quarter: 2024Q3

REPORT INFORMATION
  Report Type: Spontaneous
  Country: US (occurrence: None)
  Receive Date: 20240930
  Receipt Date: 20240930
  Transmission Date: 20241017
  Serious: Yes (unspecified)
  Sender: Public
  Company Number: None

PATIENT
  Age: 78 Year
  Sex: Male
  Weight: 94.8 kg

DRUGS (1)
  1. LENVIMA [Suspect]
     Active Substance: LENVATINIB
     Indication: Hepatocellular carcinoma
     Dates: start: 20240801

REACTIONS (4)
  - Dizziness [None]
  - Blood glucose decreased [None]
  - Blood pressure systolic increased [None]
  - Headache [None]

NARRATIVE: CASE EVENT DATE: 20240930
